FAERS Safety Report 4761092-3 (Version None)
Quarter: 2005Q3

REPORT INFORMATION
  Report Type: 
  Country: None (occurrence: None)
  Receive Date: 20050905
  Receipt Date: 20050831
  Transmission Date: 20060218
  Serious: Yes (Hospitalization, Other)
  Sender: FDA-Public Use
  Company Number: US-RB-2014-2005

PATIENT
  Sex: Male

DRUGS (5)
  1. BUPRENORPHINE HCL [Suspect]
     Indication: PAIN
     Route: 060
     Dates: start: 20041216
  2. METOPROLOL SUCCINATE [Concomitant]
     Indication: POISONING
     Route: 048
     Dates: start: 20050401
  3. FUROSEMIDE [Concomitant]
     Indication: DIURETIC EFFECT
     Route: 048
     Dates: start: 20050401
  4. CANDESARTAN CILEXETIL [Concomitant]
     Indication: POISONING
     Route: 048
     Dates: start: 20050401
  5. CLONIDINE [Concomitant]
     Indication: POISONING
     Route: 050
     Dates: start: 20050401

REACTIONS (3)
  - BRADYCARDIA [None]
  - FLUID RETENTION [None]
  - HYPERTENSION [None]
